FAERS Safety Report 6854305-5 (Version None)
Quarter: 2010Q3

REPORT INFORMATION
  Report Type: 
  Country: None (occurrence: None)
  Receive Date: 20100717
  Receipt Date: 20071231
  Transmission Date: 20110219
  Serious: Yes (Other)
  Sender: FDA-Public Use
  Company Number: US-PFIZER INC-2008000976

PATIENT
  Sex: Male
  Weight: 170 kg

DRUGS (3)
  1. CHANTIX [Suspect]
     Dates: start: 20070601, end: 20070901
  2. ZOLOFT [Concomitant]
  3. XANAX [Concomitant]

REACTIONS (5)
  - ABNORMAL DREAMS [None]
  - ANXIETY [None]
  - DEPRESSION [None]
  - PANIC ATTACK [None]
  - SUICIDAL IDEATION [None]
